FAERS Safety Report 10861358 (Version 1)
Quarter: 2015Q1

REPORT INFORMATION
  Report Type: Spontaneous
  Country: US (occurrence: None)
  Receive Date: 20150218
  Receipt Date: 20150218
  Transmission Date: 20150721
  Serious: Yes (Hospitalization)
  Sender: FDA-Public Use
  Company Number: None

PATIENT
  Age: 55 Year
  Sex: Male
  Weight: 94 kg

DRUGS (2)
  1. SUNITINIB  MALATE (SU011248L-MLATE) 1050 MG [Concomitant]
     Dates: end: 20140706
  2. GEMCITABINE HYDROCHLORIDE. [Suspect]
     Active Substance: GEMCITABINE HYDROCHLORIDE
     Dates: end: 20140630

REACTIONS (3)
  - Pleural effusion [None]
  - Pulmonary embolism [None]
  - Disease progression [None]

NARRATIVE: CASE EVENT DATE: 20140714
